FAERS Safety Report 10177054 (Version 2)
Quarter: 2014Q2

REPORT INFORMATION
  Report Type: Spontaneous
  Country: US (occurrence: None)
  Receive Date: 20140514
  Receipt Date: 20140520
  Transmission Date: 20141212
  Serious: Yes (Hospitalization)
  Sender: FDA-Public Use
  Company Number: 2014RD000031

PATIENT
  Age: 63 Year
  Sex: Male
  Weight: 110 kg

DRUGS (2)
  1. ALBUTEROL SULFATE [Suspect]
     Indication: BRONCHITIS CHRONIC
     Route: 055
  2. ALBUTEROL SULFATE [Suspect]
     Indication: ASTHMA
     Route: 055

REACTIONS (4)
  - Pneumonia [None]
  - Drug ineffective [None]
  - Hyperhidrosis [None]
  - Loss of consciousness [None]
